FAERS Safety Report 8952932 (Version 1)
Quarter: 2012Q4

REPORT INFORMATION
  Report Type: 
  Country: US (occurrence: US)
  Receive Date: 20121203
  Receipt Date: 20121203
  Transmission Date: 20130627
  Serious: Yes (Death)
  Sender: FDA-Public Use
  Company Number: US-ELI_LILLY_AND_COMPANY-US201211009493

PATIENT
  Age: 64 Year
  Sex: Male

DRUGS (1)
  1. ALIMTA [Suspect]
     Dosage: UNK, single
     Dates: start: 20121107, end: 20121107

REACTIONS (1)
  - Death [Fatal]
